FAERS Safety Report 13275877 (Version 1)
Quarter: 2017Q1

REPORT INFORMATION
  Report Type: Spontaneous
  Country: US (occurrence: US)
  Receive Date: 20170228
  Receipt Date: 20170228
  Transmission Date: 20170428
  Serious: Yes (Hospitalization, Other)
  Sender: FDA-Public Use
  Company Number: US-ACCORD-048623

PATIENT
  Age: 46 Year
  Sex: Male

DRUGS (1)
  1. TACROLIMUS. [Suspect]
     Active Substance: TACROLIMUS
     Indication: PROPHYLAXIS
     Dosage: MAINTAINED ON TACROLIMUS ON TACROLIMUS UP UNTIL CURRENT PRESENTATION.

REACTIONS (2)
  - Immune thrombocytopenic purpura [Unknown]
  - Disease recurrence [Unknown]
